FAERS Safety Report 10481943 (Version 3)
Quarter: 2014Q4

REPORT INFORMATION
  Report Type: Spontaneous
  Country: JP (occurrence: JP)
  Receive Date: 20140929
  Receipt Date: 20141008
  Transmission Date: 20150528
  Serious: Yes (Hospitalization, Other)
  Sender: FDA-Public Use
  Company Number: JP-ASTRAZENECA-2014SE67881

PATIENT
  Age: 30898 Day
  Sex: Male
  Weight: 65 kg

DRUGS (12)
  1. SEROQUEL [Suspect]
     Active Substance: QUETIAPINE FUMARATE
     Indication: PRODUCT USED FOR UNKNOWN INDICATION
     Route: 048
  2. TAMSULOSIN [Concomitant]
     Active Substance: TAMSULOSIN
  3. SENNOSIDE [Concomitant]
     Active Substance: SENNOSIDES
  4. CALCIUM L-ASPARTATE [Concomitant]
  5. CERCINE [Concomitant]
     Active Substance: DIAZEPAM
  6. MINOALE [Concomitant]
  7. PRIMIDONE. [Concomitant]
     Active Substance: PRIMIDONE
  8. MEMARY [Suspect]
     Active Substance: MEMANTINE HYDROCHLORIDE
     Indication: DEMENTIA ALZHEIMER^S TYPE
     Route: 048
     Dates: end: 20140707
  9. ALEVIATIN [Concomitant]
     Active Substance: PHENYTOIN SODIUM
  10. PHENOBAL [Concomitant]
     Active Substance: PHENOBARBITAL
  11. MAGMITT [Concomitant]
     Active Substance: MAGNESIUM OXIDE
  12. POLLAKISU [Concomitant]

REACTIONS (3)
  - Atrioventricular block [Recovered/Resolved]
  - Intentional product misuse [Unknown]
  - Arthritis bacterial [Unknown]

NARRATIVE: CASE EVENT DATE: 20140704
